FAERS Safety Report 7806007-6 (Version None)
Quarter: 2011Q4

REPORT INFORMATION
  Report Type: 
  Country: None (occurrence: None)
  Receive Date: 20111011
  Receipt Date: 20110930
  Transmission Date: 20120403
  Serious: No
  Sender: FDA-Public Use
  Company Number: PHHY2010US68873

PATIENT
  Sex: Male

DRUGS (15)
  1. ALLOPURINOL [Concomitant]
     Indication: GOUT
     Dosage: 300 MG, DAILY
     Dates: start: 20100826
  2. GLUCOSAMINE [Concomitant]
     Dosage: UNK UKN, UNK
  3. LANTUS [Concomitant]
     Dosage: UNK UKN, UNK
  4. SIMVASTATIN [Concomitant]
     Dosage: UNK UKN, UNK
  5. METFORMIN HYDROCHLORIDE [Concomitant]
     Dosage: UNK UKN, UNK
  6. ACTOS [Concomitant]
     Dosage: UNK UKN, UNK
  7. VITAMIN D [Concomitant]
     Dosage: UNK UKN, UNK
  8. TASIGNA [Suspect]
     Indication: CHRONIC MYELOID LEUKAEMIA
     Dosage: 300 MG, BID
     Route: 048
     Dates: start: 20100910
  9. TASIGNA [Suspect]
     Dosage: 150 MG, BID
     Route: 048
     Dates: start: 20100101
  10. LEVOTHYROXINE SODIUM [Concomitant]
     Dosage: UNK UKN, UNK
  11. ASPIRIN [Concomitant]
     Dosage: UNK UKN, UNK
  12. LESCOL [Concomitant]
     Dosage: UNK UKN, UNK
  13. LISINOPRIL [Concomitant]
     Dosage: UNK UKN, UNK
  14. SAW PALMETTO [Concomitant]
     Dosage: UNK UKN, UNK
  15. AMLODIPINE [Concomitant]
     Dosage: UNK UKN, UNK

REACTIONS (11)
  - DYSPEPSIA [None]
  - NAUSEA [None]
  - ABDOMINAL DISTENSION [None]
  - DECREASED APPETITE [None]
  - FATIGUE [None]
  - CONJUNCTIVITIS [None]
  - RASH PRURITIC [None]
  - PRURITUS GENERALISED [None]
  - ABDOMINAL DISCOMFORT [None]
  - FLATULENCE [None]
  - DIARRHOEA [None]
